FAERS Safety Report 7476438-5 (Version None)
Quarter: 2011Q2

REPORT INFORMATION
  Report Type: 
  Country: None (occurrence: None)
  Receive Date: 20110512
  Receipt Date: 20110506
  Transmission Date: 20111010
  Serious: Yes (Hospitalization)
  Sender: FDA-Public Use
  Company Number: US-GILEAD-2011-0038333

PATIENT
  Age: 81 Year
  Sex: Female

DRUGS (2)
  1. ADCIRCA [Concomitant]
  2. LETAIRIS [Suspect]
     Indication: PRODUCT USED FOR UNKNOWN INDICATION
     Route: 048
     Dates: start: 20110322, end: 20110422

REACTIONS (4)
  - UNEVALUABLE EVENT [None]
  - FLUID RETENTION [None]
  - OEDEMA [None]
  - DYSPNOEA [None]
